FAERS Safety Report 24086731 (Version 2)
Quarter: 2024Q3

REPORT INFORMATION
  Report Type: Report from Study
  Country: US (occurrence: US)
  Receive Date: 20240713
  Receipt Date: 20240819
  Transmission Date: 20241016
  Serious: Yes (Hospitalization)
  Sender: ABBVIE
  Company Number: US-ABBVIE-5750960

PATIENT
  Age: 42 Year
  Sex: Male

DRUGS (2)
  1. RINVOQ [Suspect]
     Active Substance: UPADACITINIB
     Indication: Colitis ulcerative
     Route: 048
     Dates: start: 20231215
  2. HUMAN VARICELLA-ZOSTER IMMUNE GLOBULIN [Concomitant]
     Active Substance: HUMAN VARICELLA-ZOSTER IMMUNE GLOBULIN
     Indication: Herpes zoster immunisation
     Dosage: SHINGLES VACCINE
     Route: 065
     Dates: start: 202402

REACTIONS (12)
  - Haematochezia [Not Recovered/Not Resolved]
  - Thrombosis [Not Recovered/Not Resolved]
  - Melanocytic naevus [Unknown]
  - Pain in extremity [Not Recovered/Not Resolved]
  - Depression [Recovering/Resolving]
  - Fatigue [Unknown]
  - Cellulitis [Recovered/Resolved]
  - Limb mass [Recovering/Resolving]
  - Gait inability [Unknown]
  - Scab [Not Recovered/Not Resolved]
  - Rash papular [Not Recovered/Not Resolved]
  - Tanning [Unknown]

NARRATIVE: CASE EVENT DATE: 20231201
